FAERS Safety Report 5449619-X (Version None)
Quarter: 2007Q3

REPORT INFORMATION
  Report Type: 
  Country: None (occurrence: None)
  Receive Date: 20070910
  Receipt Date: 20070823
  Transmission Date: 20080115
  Serious: Yes (Hospitalization, Other)
  Sender: FDA-Public Use
  Company Number: 805#1#2007-00052

PATIENT
  Age: 63 Year
  Sex: Male

DRUGS (4)
  1. ALPROSTADIL [Suspect]
     Indication: ISCHAEMIC ULCER
     Dosage: 80 MCG INTRAVENOUS DRIP
     Route: 041
     Dates: start: 20070801, end: 20070814
  2. ASPIRIN [Concomitant]
  3. ALUMINIUM GLYCINATE [Concomitant]
  4. MAGNESIUM CARBONATE (ACETYLSALICYLIC ACID, ALUMINIUM GLYCINATE, MAGNES [Concomitant]

REACTIONS (2)
  - RESPIRATORY ARREST [None]
  - ULCER HAEMORRHAGE [None]
